FAERS Safety Report 17914694 (Version 5)
Quarter: 2020Q4

REPORT INFORMATION
  Report Type: Report from Study
  Country: CA (occurrence: CA)
  Receive Date: 20200618
  Receipt Date: 20201225
  Transmission Date: 20210113
  Serious: Yes (Other)
  Sender: FDA-Public Use
  Company Number: NVSC2020CA168631

PATIENT
  Age: 66 Year
  Sex: Female

DRUGS (3)
  1. SANDOSTATIN LAR DEPOT [Suspect]
     Active Substance: OCTREOTIDE ACETATE
     Dosage: 30 MG, Q4W
     Route: 030
     Dates: start: 202007
  2. SANDOSTATIN LAR DEPOT [Suspect]
     Active Substance: OCTREOTIDE ACETATE
  3. SANDOSTATIN LAR DEPOT [Suspect]
     Active Substance: OCTREOTIDE ACETATE
     Indication: CARCINOID TUMOUR
     Dosage: 20 MG, Q4W
     Route: 030
     Dates: start: 20200602

REACTIONS (19)
  - Nasopharyngitis [Unknown]
  - Blood urine present [Unknown]
  - Protein urine present [Unknown]
  - Metastases to spine [Unknown]
  - Skin odour abnormal [Unknown]
  - Alopecia [Unknown]
  - Chronic kidney disease [Unknown]
  - Metastases to bone [Unknown]
  - Anxiety [Unknown]
  - Fatigue [Unknown]
  - Serotonin syndrome [Unknown]
  - Blood pressure systolic increased [Unknown]
  - Metastases to pituitary gland [Unknown]
  - Agitation [Unknown]
  - Abdominal discomfort [Unknown]
  - Diarrhoea [Not Recovered/Not Resolved]
  - Muscle spasms [Unknown]
  - Chills [Unknown]
  - Abdominal pain upper [Unknown]

NARRATIVE: CASE EVENT DATE: 202006
